FAERS Safety Report 19892533 (Version 1)
Quarter: 2021Q3

REPORT INFORMATION
  Report Type: Spontaneous
  Country: US (occurrence: US)
  Receive Date: 20210928
  Receipt Date: 20210928
  Transmission Date: 20211014
  Serious: No
  Sender: FDA-Public Use
  Company Number: US-JNJFOC-20210929753

PATIENT
  Age: 79 Year
  Sex: Male

DRUGS (1)
  1. PEPCID AC MAXIMUM STRENGTH [Suspect]
     Active Substance: FAMOTIDINE
     Indication: GASTRITIS
     Route: 065
     Dates: start: 20210903

REACTIONS (5)
  - Off label use [Unknown]
  - Insomnia [Not Recovered/Not Resolved]
  - Product use in unapproved indication [Unknown]
  - Headache [Not Recovered/Not Resolved]
  - Overdose [Unknown]

NARRATIVE: CASE EVENT DATE: 202109
